FAERS Safety Report 16337343 (Version 1)
Quarter: 2019Q2

REPORT INFORMATION
  Report Type: Spontaneous
  Country: US (occurrence: US)
  Receive Date: 20190416
  Receipt Date: 20190416
  Transmission Date: 20190711
  Serious: No
  Sender: FDA-Public Use
  Company Number: None

PATIENT

DRUGS (1)
  1. PROLIA [Suspect]
     Active Substance: DENOSUMAB

REACTIONS (4)
  - Musculoskeletal pain [None]
  - Amnesia [None]
  - Feeling abnormal [None]
  - Arthralgia [None]

NARRATIVE: CASE EVENT DATE: 20190212
